FAERS Safety Report 9502446 (Version 1)
Quarter: 2013Q3

REPORT INFORMATION
  Report Type: Spontaneous
  Country: US (occurrence: US)
  Receive Date: 20130906
  Receipt Date: 20130906
  Transmission Date: 20140515
  Serious: No
  Sender: FDA-Public Use
  Company Number: US-009507513-1309USA002451

PATIENT
  Age: 57 Year
  Sex: Female

DRUGS (1)
  1. ASMANEX TWISTHALER [Suspect]
     Indication: ASTHMA
     Dosage: 220 MICROGRAM/ ONE PUFF IN THE MORNING AND EVENING
     Route: 055
     Dates: start: 2010

REACTIONS (2)
  - Expired drug administered [Unknown]
  - No adverse event [Unknown]
